FAERS Safety Report 20893314 (Version 1)
Quarter: 2022Q2

REPORT INFORMATION
  Report Type: Spontaneous
  Country: ES (occurrence: ES)
  Receive Date: 20220531
  Receipt Date: 20220531
  Transmission Date: 20220720
  Serious: Yes (Death, Other)
  Sender: FDA-Public Use
  Company Number: ES-AMGEN-ESPSP2022090299

PATIENT

DRUGS (3)
  1. CARFILZOMIB [Suspect]
     Active Substance: CARFILZOMIB
     Indication: Plasma cell myeloma
     Dosage: UNK
     Route: 065
  2. POMALIDOMIDE [Concomitant]
     Active Substance: POMALIDOMIDE
     Indication: Plasma cell myeloma
     Dosage: UNK
     Route: 065
  3. DARATUMUMAB [Concomitant]
     Active Substance: DARATUMUMAB
     Indication: Plasma cell myeloma
     Dosage: UNK
     Route: 065

REACTIONS (36)
  - Plasma cell myeloma [Fatal]
  - Death [Fatal]
  - Infection [Fatal]
  - Anaemia [Unknown]
  - Thrombocytopenia [Unknown]
  - Neutropenia [Unknown]
  - Leukopenia [Unknown]
  - Lymphopenia [Unknown]
  - Cytopenia [Unknown]
  - Infestation [Unknown]
  - Nervous system disorder [Unknown]
  - Diarrhoea [Unknown]
  - Metabolic disorder [Unknown]
  - Pyrexia [Unknown]
  - Asthenia [Unknown]
  - Oedema peripheral [Unknown]
  - Fatigue [Unknown]
  - Nausea [Unknown]
  - Constipation [Unknown]
  - Vomiting [Unknown]
  - Malnutrition [Unknown]
  - Back pain [Unknown]
  - Arthralgia [Unknown]
  - Mental disorder [Unknown]
  - Renal disorder [Unknown]
  - Urinary tract disorder [Unknown]
  - Injury [Unknown]
  - Poisoning [Unknown]
  - Procedural complication [Unknown]
  - Skin disorder [Unknown]
  - Cardiac disorder [Unknown]
  - Angiopathy [Unknown]
  - Dyspnoea [Unknown]
  - General physical health deterioration [Unknown]
  - Therapy non-responder [Unknown]
  - Therapy partial responder [Unknown]
